FAERS Safety Report 6652730-9 (Version None)
Quarter: 2010Q1

REPORT INFORMATION
  Report Type: 
  Country: None (occurrence: None)
  Receive Date: 20100326
  Receipt Date: 20100318
  Transmission Date: 20100710
  Serious: Yes (Other)
  Sender: FDA-Public Use
  Company Number: US-JNJFOC-20100305213

PATIENT
  Sex: Female
  Weight: 58.97 kg

DRUGS (7)
  1. DURAGESIC-100 [Suspect]
     Indication: PAIN
     Route: 062
  2. DURAGESIC-100 [Suspect]
     Route: 062
  3. DURAGESIC-100 [Suspect]
     Route: 062
  4. PERCOCET [Concomitant]
     Indication: BREAKTHROUGH PAIN
     Dosage: 10/325
  5. PROTOPIC [Concomitant]
     Indication: SKIN DISORDER
     Route: 061
  6. SALAGEN [Concomitant]
     Indication: EYE DISORDER
     Route: 048
  7. SYNTHROID [Concomitant]
     Indication: THYROID DISORDER
     Route: 048

REACTIONS (6)
  - APPLICATION SITE IRRITATION [None]
  - BODY HEIGHT DECREASED [None]
  - SLEEP APNOEA SYNDROME [None]
  - VISUAL IMPAIRMENT [None]
  - WEIGHT DECREASED [None]
  - WRONG TECHNIQUE IN DRUG USAGE PROCESS [None]
